FAERS Safety Report 24679784 (Version 2)
Quarter: 2025Q3

REPORT INFORMATION
  Report Type: Report from Study
  Country: US (occurrence: US)
  Receive Date: 20241129
  Receipt Date: 20250809
  Transmission Date: 20251020
  Serious: Yes (Other)
  Sender: ALEXION PHARMACEUTICALS
  Company Number: US-AstraZeneca-CH-00753884A

PATIENT
  Sex: Male

DRUGS (2)
  1. DAPAGLIFLOZIN [Suspect]
     Active Substance: DAPAGLIFLOZIN
  2. CRESTOR [Suspect]
     Active Substance: ROSUVASTATIN CALCIUM

REACTIONS (9)
  - Pain in extremity [Unknown]
  - Arthralgia [Unknown]
  - Decreased appetite [Unknown]
  - Insomnia [Unknown]
  - Pain [Unknown]
  - Oedema [Unknown]
  - Adverse drug reaction [Unknown]
  - Type 2 diabetes mellitus [Unknown]
  - Chronic kidney disease [Unknown]
